FAERS Safety Report 17904644 (Version 9)
Quarter: 2021Q3

REPORT INFORMATION
  Report Type: Spontaneous
  Country: US (occurrence: US)
  Receive Date: 20200617
  Receipt Date: 20210803
  Transmission Date: 20211014
  Serious: Yes (Other)
  Sender: FDA-Public Use
  Company Number: US-GILEAD-2020-0471554

PATIENT
  Age: 65 Year
  Sex: Male
  Weight: 88.44 kg

DRUGS (64)
  1. TRUVADA [Suspect]
     Active Substance: EMTRICITABINE\TENOFOVIR DISOPROXIL FUMARATE
     Indication: HIV INFECTION
     Dosage: UNK
     Route: 048
     Dates: start: 20050525, end: 201806
  2. ZOLOFT [Concomitant]
     Active Substance: SERTRALINE HYDROCHLORIDE
  3. STRATTERA [Concomitant]
     Active Substance: ATOMOXETINE HYDROCHLORIDE
  4. ONDASETRON [ONDANSETRON HYDROCHLORIDE] [Concomitant]
     Active Substance: ONDANSETRON HYDROCHLORIDE
  5. BUPRENORPHINE. [Concomitant]
     Active Substance: BUPRENORPHINE
  6. TRUVADA [Suspect]
     Active Substance: EMTRICITABINE\TENOFOVIR DISOPROXIL FUMARATE
     Dosage: UNK
     Route: 065
     Dates: start: 20050525, end: 20140707
  7. REBETOL [Concomitant]
     Active Substance: RIBAVIRIN
  8. COMBIVIR [Concomitant]
     Active Substance: LAMIVUDINE\ZIDOVUDINE
  9. ASPRIN [Concomitant]
     Active Substance: ASPIRIN
  10. CORTISONE [Concomitant]
     Active Substance: CORTISONE
  11. BACTRIM DS [Concomitant]
     Active Substance: SULFAMETHOXAZOLE\TRIMETHOPRIM
  12. NORVIR [Concomitant]
     Active Substance: RITONAVIR
  13. FLUOCINONIDE. [Concomitant]
     Active Substance: FLUOCINONIDE
  14. EFFIENT [Concomitant]
     Active Substance: PRASUGREL HYDROCHLORIDE
  15. STRIBILD [Suspect]
     Active Substance: COBICISTAT\ELVITEGRAVIR\EMTRICITABINE\TENOFOVIR DISOPROXIL FUMARATE
     Dosage: UNK
     Route: 065
     Dates: start: 20140707, end: 20141031
  16. GENVOYA [Concomitant]
     Active Substance: COBICISTAT\ELVITEGRAVIR\EMTRICITABINE\TENOFOVIR ALAFENAMIDE FUMARATE
  17. EPIVIR [Concomitant]
     Active Substance: LAMIVUDINE
  18. KALETRA [Concomitant]
     Active Substance: LOPINAVIR\RITONAVIR
  19. FAMOTIDINE. [Concomitant]
     Active Substance: FAMOTIDINE
  20. PROPANOLOL [PROPRANOLOL] [Concomitant]
     Active Substance: PROPRANOLOL HYDROCHLORIDE
  21. ISENTRESS [Concomitant]
     Active Substance: RALTEGRAVIR POTASSIUM
  22. PREZISTA [Concomitant]
     Active Substance: DARUNAVIR ETHANOLATE
  23. IBUPROFEN. [Concomitant]
     Active Substance: IBUPROFEN
  24. LEVAQUIN [Concomitant]
     Active Substance: LEVOFLOXACIN
  25. MAVYRET [Concomitant]
     Active Substance: GLECAPREVIR\PIBRENTASVIR
  26. FLOMAX RELIEF [Concomitant]
     Active Substance: TAMSULOSIN HYDROCHLORIDE
  27. ZIAGEN [Concomitant]
     Active Substance: ABACAVIR SULFATE
  28. PRILOSEC [Concomitant]
     Active Substance: OMEPRAZOLE MAGNESIUM
  29. METOPROLOL TARTRATE. [Concomitant]
     Active Substance: METOPROLOL TARTRATE
  30. EFFEXOR [Concomitant]
     Active Substance: VENLAFAXINE HYDROCHLORIDE
  31. GABAPENTIN. [Concomitant]
     Active Substance: GABAPENTIN
  32. BACLOFEN. [Concomitant]
     Active Substance: BACLOFEN
  33. OXYCODONE [Concomitant]
     Active Substance: OXYCODONE
  34. TRUVADA [Suspect]
     Active Substance: EMTRICITABINE\TENOFOVIR DISOPROXIL FUMARATE
     Dosage: UNK
     Route: 048
     Dates: start: 2008
  35. ATRIPLA [Suspect]
     Active Substance: EFAVIRENZ\EMTRICITABINE\TENOFOVIR DISOPROXIL FUMARATE
     Indication: PRODUCT USED FOR UNKNOWN INDICATION
     Route: 048
  36. BIKTARVY [Concomitant]
     Active Substance: BICTEGRAVIR SODIUM\EMTRICITABINE\TENOFOVIR ALAFENAMIDE FUMARATE
  37. INTERFERON [Concomitant]
     Active Substance: INTERFERON
  38. SUSTIVA [Concomitant]
     Active Substance: EFAVIRENZ
  39. PREDNISONE. [Concomitant]
     Active Substance: PREDNISONE
  40. AMOXICILLIN. [Concomitant]
     Active Substance: AMOXICILLIN
  41. ACETAMINOPHEN. [Concomitant]
     Active Substance: ACETAMINOPHEN
  42. CELEXA [CELECOXIB] [Concomitant]
     Active Substance: CELECOXIB
  43. LEXAPRO [Concomitant]
     Active Substance: ESCITALOPRAM OXALATE
  44. NITROFURANTOIN. [Concomitant]
     Active Substance: NITROFURANTOIN
  45. BISOPROLOL FUMARATE. [Concomitant]
     Active Substance: BISOPROLOL FUMARATE
  46. CEFALEXIN [Concomitant]
     Active Substance: CEPHALEXIN
  47. CARBIDOPA AND LEVODOPA [Concomitant]
     Active Substance: CARBIDOPA\LEVODOPA
  48. MIRTAZAPINE. [Concomitant]
     Active Substance: MIRTAZAPINE
  49. TRUVADA [Suspect]
     Active Substance: EMTRICITABINE\TENOFOVIR DISOPROXIL FUMARATE
     Dosage: UNK
     Route: 065
     Dates: start: 20050525, end: 201607
  50. COMPLERA [Suspect]
     Active Substance: EMTRICITABINE\RILPIVIRINE HYDROCHLORIDE\TENOFOVIR DISOPROXIL FUMARATE
     Indication: PRODUCT USED FOR UNKNOWN INDICATION
     Route: 048
  51. ACYCLOVIR [ACICLOVIR] [Concomitant]
     Active Substance: ACYCLOVIR
  52. DOXAZOSIN [Concomitant]
     Active Substance: DOXAZOSIN MESYLATE
  53. PHENAZOPYRIDINE. [Concomitant]
     Active Substance: PHENAZOPYRIDINE
  54. TAMSULOSIN [Concomitant]
     Active Substance: TAMSULOSIN
  55. NITROSTAT [Concomitant]
     Active Substance: NITROGLYCERIN
  56. LEVETIRACETAM. [Concomitant]
     Active Substance: LEVETIRACETAM
  57. VIREAD [Suspect]
     Active Substance: TENOFOVIR DISOPROXIL FUMARATE
     Indication: HIV INFECTION
     Dosage: UNK
     Route: 048
     Dates: start: 20020111, end: 20050525
  58. STRIBILD [Suspect]
     Active Substance: COBICISTAT\ELVITEGRAVIR\EMTRICITABINE\TENOFOVIR DISOPROXIL FUMARATE
     Indication: HIV INFECTION
     Dosage: UNK
     Route: 048
     Dates: start: 20140707, end: 201806
  59. ATORVASTATIN [Concomitant]
     Active Substance: ATORVASTATIN
  60. XANAX [Concomitant]
     Active Substance: ALPRAZOLAM
  61. CIPROFLOXACIN. [Concomitant]
     Active Substance: CIPROFLOXACIN
  62. TRIHEXYPHENIDYL [Concomitant]
     Active Substance: TRIHEXYPHENIDYL
  63. TRAMADOL. [Concomitant]
     Active Substance: TRAMADOL
  64. CYCLOBENZAPRINE. [Concomitant]
     Active Substance: CYCLOBENZAPRINE

REACTIONS (11)
  - Chronic kidney disease [Unknown]
  - Blood creatinine increased [Not Recovered/Not Resolved]
  - Nephropathy [Unknown]
  - Radiculopathy [Unknown]
  - Multiple fractures [Not Recovered/Not Resolved]
  - Fanconi syndrome acquired [Not Recovered/Not Resolved]
  - Renal failure [Not Recovered/Not Resolved]
  - Lumbar vertebral fracture [Unknown]
  - Acute kidney injury [Not Recovered/Not Resolved]
  - Viral load increased [Recovered/Resolved]
  - Drug ineffective [Recovered/Resolved]

NARRATIVE: CASE EVENT DATE: 20020111
